FAERS Safety Report 6662557-X (Version None)
Quarter: 2010Q1

REPORT INFORMATION
  Report Type: 
  Country: None (occurrence: None)
  Receive Date: 20100329
  Receipt Date: 20100318
  Transmission Date: 20100710
  Serious: Yes (Hospitalization)
  Sender: FDA-Public Use
  Company Number: CLOF-1000258

PATIENT
  Age: 49 Year
  Sex: Male
  Weight: 80 kg

DRUGS (4)
  1. EVOLTRA (CLOFARABINE) SOLUTION FOR INFUSION [Suspect]
     Indication: ACUTE MYELOID LEUKAEMIA
     Dosage: 40 MG/M2, QDX5, INTRAVENOUS, 40 MG/M2, QDX5, INTRAVENOUS
     Route: 042
     Dates: start: 20080514, end: 20080518
  2. EVOLTRA (CLOFARABINE) SOLUTION FOR INFUSION [Suspect]
     Indication: ACUTE MYELOID LEUKAEMIA
     Dosage: 40 MG/M2, QDX5, INTRAVENOUS, 40 MG/M2, QDX5, INTRAVENOUS
     Route: 042
     Dates: start: 20080627, end: 20080701
  3. CYTARABINE [Suspect]
     Indication: ACUTE MYELOID LEUKAEMIA
     Dosage: 1 G/M2, QDX5, INTRAVENOUS; 1 G/M2, QDX5, INTRAVENOUS
     Route: 042
     Dates: start: 20080513, end: 20080517
  4. CYTARABINE [Suspect]
     Indication: ACUTE MYELOID LEUKAEMIA
     Dosage: 1 G/M2, QDX5, INTRAVENOUS; 1 G/M2, QDX5, INTRAVENOUS
     Route: 042
     Dates: start: 20080626, end: 20080630

REACTIONS (5)
  - ASPERGILLOSIS [None]
  - EXTENSOR PLANTAR RESPONSE [None]
  - LHERMITTE'S SIGN [None]
  - MYELITIS [None]
  - PYRAMIDAL TRACT SYNDROME [None]
